FAERS Safety Report 25984450 (Version 1)
Quarter: 2025Q4

REPORT INFORMATION
  Report Type: Spontaneous
  Country: US (occurrence: None)
  Receive Date: 20251031
  Receipt Date: 20251031
  Transmission Date: 20260117
  Serious: Yes (Other)
  Sender: FDA-CTU
  Company Number: None

PATIENT
  Sex: Female

DRUGS (1)
  1. MONISTAT COMPLETE CARE INSTANT ITCH RELIEF [Suspect]
     Active Substance: HYDROCORTISONE

REACTIONS (2)
  - Vulval haemorrhage [None]
  - Vulvovaginal pain [None]

NARRATIVE: CASE EVENT DATE: 20251024
